FAERS Safety Report 16070339 (Version 1)
Quarter: 2019Q1

REPORT INFORMATION
  Report Type: Report from Study
  Country: DE (occurrence: DE)
  Receive Date: 20190314
  Receipt Date: 20190314
  Transmission Date: 20190418
  Serious: Yes (Hospitalization, Other)
  Sender: FDA-Public Use
  Company Number: DE-ROCHE-1666766

PATIENT
  Age: 80 Year
  Sex: Male
  Weight: 82 kg

DRUGS (27)
  1. BEVACIZUMAB. [Suspect]
     Active Substance: BEVACIZUMAB
     Route: 042
     Dates: start: 20160321, end: 20160413
  2. OXALIPLATIN. [Suspect]
     Active Substance: OXALIPLATIN
     Route: 042
     Dates: start: 20161004, end: 20161004
  3. AMLODIPIN [Concomitant]
     Active Substance: AMLODIPINE BESYLATE
     Indication: HYPERTENSION
     Route: 048
     Dates: start: 201407
  4. XELODA [Suspect]
     Active Substance: CAPECITABINE
     Dosage: DATE OF MOST RECENT DOSE: 22/JUN/2016
     Route: 048
     Dates: start: 20160609, end: 20160622
  5. XELODA [Suspect]
     Active Substance: CAPECITABINE
     Route: 048
     Dates: start: 20161004, end: 20161017
  6. ATROPIN [Concomitant]
     Active Substance: ATROPINE
     Indication: CHOLINERGIC SYNDROME
  7. FOSINORM [Concomitant]
     Indication: HYPERTENSION
     Route: 048
     Dates: start: 2001
  8. ASPIRIN. [Concomitant]
     Active Substance: ASPIRIN
     Route: 048
     Dates: start: 2001
  9. DEXAMETHASON [Concomitant]
     Active Substance: DEXAMETHASONE
     Indication: NAUSEA
     Dosage: DAY 1 BEFORE CHEMOTHERAPY
     Route: 042
     Dates: start: 20160413, end: 20161004
  10. IRINOTECAN [Concomitant]
     Active Substance: IRINOTECAN
     Indication: COLORECTAL CANCER
     Route: 042
     Dates: start: 20150924, end: 20151105
  11. GLIMEPIRID [Concomitant]
     Active Substance: GLIMEPIRIDE
     Indication: DIABETES MELLITUS
     Route: 048
     Dates: start: 2011, end: 20151127
  12. GRANISETRON [Concomitant]
     Active Substance: GRANISETRON
     Indication: NAUSEA
     Dosage: DAY 1 BEFORE CHEMOTHERAPY
     Route: 042
     Dates: start: 20160413
  13. FORTECORTIN [Concomitant]
     Active Substance: DEXAMETHASONE
     Indication: VOMITING
  14. XELODA [Suspect]
     Active Substance: CAPECITABINE
     Indication: COLORECTAL CANCER METASTATIC
     Dosage: D1 TO D14, ONE WEEK REST
     Route: 048
     Dates: start: 20150924, end: 20151118
  15. OXALIPLATIN. [Suspect]
     Active Substance: OXALIPLATIN
     Indication: COLORECTAL CANCER METASTATIC
     Route: 042
     Dates: start: 20160413, end: 20160504
  16. ENOXAPARIN [Concomitant]
     Active Substance: ENOXAPARIN
     Indication: THROMBOSIS
     Route: 058
     Dates: start: 20151122, end: 20151202
  17. KEVATRIL [Concomitant]
     Active Substance: GRANISETRON HYDROCHLORIDE
     Indication: NAUSEA
     Route: 042
     Dates: start: 20150924, end: 20160321
  18. IRINOTECAN [Concomitant]
     Active Substance: IRINOTECAN
     Route: 042
     Dates: start: 20160208, end: 20160208
  19. IRINOTECAN [Concomitant]
     Active Substance: IRINOTECAN
     Dosage: MOST RECENT DOSE RECEIVED ON 21/MAR/2016
     Route: 042
     Dates: start: 20160229
  20. DIMENHYDRINATE. [Concomitant]
     Active Substance: DIMENHYDRINATE
     Indication: VOMITING
     Dosage: 1 AMPOLE
     Route: 042
     Dates: start: 20151126, end: 20151127
  21. XELODA [Suspect]
     Active Substance: CAPECITABINE
     Dosage: D1 TO D14, ONE WEEK REST, MOST RECENT DOSES RECEIVED ON 03/APR/2016, 04/MAY/2016
     Route: 048
     Dates: start: 20160118
  22. BEVACIZUMAB. [Suspect]
     Active Substance: BEVACIZUMAB
     Indication: COLORECTAL CANCER METASTATIC
     Dosage: LAST DATE OF DOSE ADMINISTERED PRIOR TO SAE: 05/NOV/2015
     Route: 042
     Dates: start: 20150924, end: 20150924
  23. OXALIPLATIN. [Suspect]
     Active Substance: OXALIPLATIN
     Route: 042
     Dates: start: 20160609, end: 20160609
  24. ATROPIN [Concomitant]
     Active Substance: ATROPINE
     Indication: DIARRHOEA
     Route: 058
     Dates: start: 20150924, end: 20160321
  25. SIMVASTATIN. [Concomitant]
     Active Substance: SIMVASTATIN
     Indication: HYPERCHOLESTEROLAEMIA
     Route: 048
     Dates: start: 2015, end: 20151119
  26. FORTECORTIN [Concomitant]
     Active Substance: DEXAMETHASONE
     Indication: NAUSEA
     Route: 042
     Dates: start: 20150924, end: 20160321
  27. BEVACIZUMAB. [Suspect]
     Active Substance: BEVACIZUMAB
     Dosage: LAST DATE OF DOSE ADMINISTERED PRIOR TO SAE: 05/NOV/2015
     Route: 042
     Dates: start: 20151105

REACTIONS (12)
  - Diarrhoea [Recovered/Resolved]
  - Hypokalaemia [Recovered/Resolved]
  - Weight decreased [Not Recovered/Not Resolved]
  - Vomiting [Recovered/Resolved]
  - Diarrhoea [Recovered/Resolved]
  - Proteinuria [Not Recovered/Not Resolved]
  - Prothrombin time prolonged [Recovered/Resolved]
  - Diarrhoea [Recovering/Resolving]
  - Decreased appetite [Recovered/Resolved]
  - Diarrhoea [Recovered/Resolved]
  - Dehydration [Recovered/Resolved]
  - Circulatory collapse [Recovered/Resolved]

NARRATIVE: CASE EVENT DATE: 20150925
